FAERS Safety Report 5146136-1 (Version None)
Quarter: 2006Q4

REPORT INFORMATION
  Report Type: 
  Country: None (occurrence: None)
  Receive Date: 20061108
  Receipt Date: 20060613
  Transmission Date: 20070319
  Serious: Yes (Other)
  Sender: FDA-Public Use
  Company Number: US-ROCHE-451853

PATIENT
  Age: 30 Year
  Sex: Female

DRUGS (2)
  1. PEGASYS [Suspect]
     Indication: HEPATITIS C
     Route: 058
     Dates: start: 20060302, end: 20060525
  2. COPEGUS [Suspect]
     Indication: HEPATITIS C
     Route: 048
     Dates: start: 20060302, end: 20060525

REACTIONS (10)
  - BASEDOW'S DISEASE [None]
  - DEHYDRATION [None]
  - HEART RATE INCREASED [None]
  - HYPERHIDROSIS [None]
  - HYPOTHYROIDISM [None]
  - MUSCLE TWITCHING [None]
  - PALPITATIONS [None]
  - PANIC REACTION [None]
  - TACHYCARDIA [None]
  - THYROID CYST [None]
